FAERS Safety Report 8241215-4 (Version None)
Quarter: 2012Q1

REPORT INFORMATION
  Report Type: 
  Country: None (occurrence: None)
  Receive Date: 20120328
  Receipt Date: 20120324
  Transmission Date: 20120608
  Serious: No
  Sender: FDA-Public Use
  Company Number: US-BAYER-2012-030125

PATIENT

DRUGS (3)
  1. NYQUIL [Concomitant]
     Dosage: UNK
  2. ALEVE (CAPLET) [Suspect]
     Dosage: UNK
     Route: 048
     Dates: start: 20120324
  3. BENADRYL [Concomitant]
     Dosage: UNK

REACTIONS (1)
  - EUPHORIC MOOD [None]
